FAERS Safety Report 5040645-1 (Version None)
Quarter: 2006Q2

REPORT INFORMATION
  Report Type: 
  Country: None (occurrence: None)
  Receive Date: 20060630
  Receipt Date: 20060628
  Transmission Date: 20061013
  Serious: Yes (Other)
  Sender: FDA-Public Use
  Company Number: GB-MERCK-0606GBR00114

PATIENT
  Age: 36 Year
  Sex: Female

DRUGS (4)
  1. SINGULAIR [Suspect]
     Indication: ASTHMA
     Route: 048
     Dates: start: 20060523, end: 20060529
  2. BUDESONIDE [Concomitant]
     Indication: ASTHMA
     Route: 065
     Dates: start: 20050124
  3. FORMOTEROL FUMARATE [Concomitant]
     Indication: ASTHMA
     Route: 065
     Dates: start: 20050124
  4. TERBUTALINE SULFATE [Concomitant]
     Indication: ASTHMA
     Route: 055
     Dates: start: 20050124

REACTIONS (3)
  - ANGIONEUROTIC OEDEMA [None]
  - DYSPNOEA [None]
  - PHARYNGEAL OEDEMA [None]
